FAERS Safety Report 7961019-7 (Version None)
Quarter: 2011Q4

REPORT INFORMATION
  Report Type: 
  Country: None (occurrence: None)
  Receive Date: 20111207
  Receipt Date: 20111205
  Transmission Date: 20120403
  Serious: Yes (Other)
  Sender: FDA-Public Use
  Company Number: US-PFIZER INC-2011296771

PATIENT
  Sex: Female
  Weight: 74.83 kg

DRUGS (2)
  1. EFFEXOR [Suspect]
     Indication: ANXIETY
  2. EFFEXOR [Suspect]
     Indication: DEPRESSION
     Dosage: 75 MG, 1X/DAY
     Route: 048
     Dates: end: 20111128

REACTIONS (12)
  - DEPRESSION [None]
  - FEAR [None]
  - DRUG WITHDRAWAL SYNDROME [None]
  - PARAESTHESIA [None]
  - HEADACHE [None]
  - DEREALISATION [None]
  - PHOBIA OF DRIVING [None]
  - DIZZINESS [None]
  - SENSORY DISTURBANCE [None]
  - SOCIAL FEAR [None]
  - FEELING ABNORMAL [None]
  - HYPOAESTHESIA [None]
